FAERS Safety Report 6688238-4 (Version None)
Quarter: 2010Q2

REPORT INFORMATION
  Report Type: 
  Country: None (occurrence: None)
  Receive Date: 20100420
  Receipt Date: 20100415
  Transmission Date: 20101027
  Serious: Yes (Death, Hospitalization, Other)
  Sender: FDA-Public Use
  Company Number: JP-BAYER-200913156BYL

PATIENT
  Age: 74 Year
  Sex: Male
  Weight: 59 kg

DRUGS (12)
  1. NEXAVAR [Suspect]
     Indication: HEPATIC NEOPLASM MALIGNANT
     Dosage: TOTAL DAILY DOSE: 400 MG  UNIT DOSE: 200 MG
     Route: 048
     Dates: start: 20090703, end: 20090710
  2. NEXAVAR [Suspect]
     Dosage: TOTAL DAILY DOSE: 200 MG  UNIT DOSE: 200 MG
     Route: 048
     Dates: start: 20090710, end: 20090901
  3. NEXAVAR [Suspect]
     Dosage: TOTAL DAILY DOSE: 200 MG  UNIT DOSE: 200 MG
     Route: 048
     Dates: start: 20090918, end: 20091026
  4. NEXAVAR [Suspect]
     Dosage: TOTAL DAILY DOSE: 200 MG  UNIT DOSE: 200 MG
     Route: 048
     Dates: start: 20091103, end: 20091230
  5. LANDEL10_20 [Concomitant]
     Dosage: BEFORE NEXAVAR ADMINISTRATION
     Route: 048
     Dates: end: 20090701
  6. EPL [Concomitant]
     Route: 048
     Dates: start: 19980701
  7. URSO 250 [Concomitant]
     Route: 048
     Dates: start: 19990201
  8. NEO-MINOPHAGEN C [Concomitant]
     Route: 042
     Dates: start: 20000929
  9. PROTECADIN [Concomitant]
     Route: 048
     Dates: start: 20070221
  10. BENIDIPINE HYDROCHLORIDE [Concomitant]
     Route: 048
     Dates: start: 20090901
  11. NIFLEC [Concomitant]
     Indication: BOWEL PREPARATION
     Route: 048
     Dates: start: 20091028, end: 20091028
  12. GLYCERIN [Concomitant]
     Indication: BOWEL PREPARATION
     Route: 054
     Dates: start: 20091028, end: 20091028

REACTIONS (17)
  - ALTERED STATE OF CONSCIOUSNESS [None]
  - ASCITES [None]
  - BILIRUBIN CONJUGATED INCREASED [None]
  - CHEST PAIN [None]
  - CONSTIPATION [None]
  - DIVERTICULUM INTESTINAL HAEMORRHAGIC [None]
  - HEPATIC ENCEPHALOPATHY PROPHYLAXIS [None]
  - HEPATIC NEOPLASM MALIGNANT [None]
  - INSOMNIA [None]
  - NASOPHARYNGITIS [None]
  - NAUSEA [None]
  - OEDEMA [None]
  - OROPHARYNGEAL DISCOMFORT [None]
  - PLATELET COUNT DECREASED [None]
  - PRURITUS [None]
  - PYREXIA [None]
  - SEPSIS [None]
